FAERS Safety Report 7272662-5 (Version None)
Quarter: 2011Q1

REPORT INFORMATION
  Report Type: 
  Country: None (occurrence: None)
  Receive Date: 20110203
  Receipt Date: 20110129
  Transmission Date: 20110831
  Serious: Yes (Death)
  Sender: FDA-Public Use
  Company Number: IL-BRISTOL-MYERS SQUIBB COMPANY-15523889

PATIENT
  Age: 10 Year

DRUGS (1)
  1. AMPHOTERICIN B [Suspect]

REACTIONS (1)
  - ZYGOMYCOSIS [None]
